FAERS Safety Report 4850359-6 (Version None)
Quarter: 2005Q4

REPORT INFORMATION
  Report Type: 
  Country: None (occurrence: None)
  Receive Date: 20051207
  Receipt Date: 20051207
  Transmission Date: 20060501
  Serious: Yes (Disabling)
  Sender: FDA-Public Use
  Company Number: None

PATIENT
  Age: 76 Year
  Sex: Male

DRUGS (1)
  1. LEVAQUIN [Suspect]
     Indication: OTITIS MEDIA CHRONIC
     Dosage: 500MG Q DAY PO
     Route: 048
     Dates: start: 20051015, end: 20051025

REACTIONS (4)
  - OEDEMA PERIPHERAL [None]
  - PAIN IN EXTREMITY [None]
  - PITTING OEDEMA [None]
  - SKIN WARM [None]
